FAERS Safety Report 5019240-6 (Version None)
Quarter: 2006Q2

REPORT INFORMATION
  Report Type: 
  Country: None (occurrence: None)
  Receive Date: 20060606
  Receipt Date: 20060504
  Transmission Date: 20061013
  Serious: Yes (Hospitalization)
  Sender: FDA-Public Use
  Company Number: GB-BRISTOL-MYERS SQUIBB COMPANY-13368188

PATIENT
  Age: 12 Year
  Sex: Male
  Weight: 35 kg

DRUGS (2)
  1. ABILIFY [Suspect]
     Indication: AUTISM
     Route: 048
  2. MELATONIN [Concomitant]
     Indication: INSOMNIA
     Route: 048
     Dates: start: 20040429, end: 20060418

REACTIONS (2)
  - DYSARTHRIA [None]
  - TONGUE DISORDER [None]
